FAERS Safety Report 19359354 (Version 2)
Quarter: 2021Q3

REPORT INFORMATION
  Report Type: Spontaneous
  Country: FR (occurrence: FR)
  Receive Date: 20210602
  Receipt Date: 20210726
  Transmission Date: 20211014
  Serious: Yes (Life-Threatening, Hospitalization)
  Sender: FDA-Public Use
  Company Number: FR-MYLANLABS-2021M1032367

PATIENT
  Age: 51 Year
  Sex: Female

DRUGS (2)
  1. THERALENE [Interacting]
     Active Substance: TRIMEPRAZINE
     Indication: MENTAL DISORDER
     Dosage: UNK
     Route: 048
     Dates: start: 2020
  2. QUETIAPINE. [Suspect]
     Active Substance: QUETIAPINE
     Indication: MENTAL DISORDER
     Dosage: 600 MILLIGRAM, QD
     Route: 048
     Dates: start: 2020

REACTIONS (4)
  - Colitis ischaemic [Recovered/Resolved with Sequelae]
  - Faecaloma [Recovered/Resolved]
  - Intestinal ischaemia [Recovered/Resolved with Sequelae]
  - Drug interaction [Unknown]

NARRATIVE: CASE EVENT DATE: 20201216
